FAERS Safety Report 14631168 (Version 1)
Quarter: 2018Q1

REPORT INFORMATION
  Report Type: Spontaneous
  Country: US (occurrence: US)
  Receive Date: 20180313
  Receipt Date: 20180313
  Transmission Date: 20180509
  Serious: No
  Sender: FDA-Public Use
  Company Number: US-PFIZER INC-2018073888

PATIENT
  Age: 77 Year
  Sex: Male
  Weight: 94.8 kg

DRUGS (1)
  1. LYRICA [Suspect]
     Active Substance: PREGABALIN
     Indication: NEURALGIA
     Dosage: 150 MG, DAILY  [3 UNITS OF 50 MG/DAY]
     Dates: start: 201802

REACTIONS (2)
  - Cognitive disorder [Unknown]
  - Drug ineffective [Unknown]
